FAERS Safety Report 18608891 (Version 1)
Quarter: 2020Q4

REPORT INFORMATION
  Report Type: Spontaneous
  Country: TW (occurrence: TW)
  Receive Date: 20201213
  Receipt Date: 20201213
  Transmission Date: 20210114
  Serious: Yes (Hospitalization, Other)
  Sender: FDA-Public Use
  Company Number: TW-AMGEN-TWNSP2020200721

PATIENT
  Age: 73 Year
  Sex: Female

DRUGS (1)
  1. ENBREL [Suspect]
     Active Substance: ETANERCEPT
     Indication: RHEUMATOID ARTHRITIS
     Dosage: 25 MG, BIW
     Route: 058
     Dates: start: 20040303

REACTIONS (4)
  - Infection [Recovering/Resolving]
  - Pyoderma gangrenosum [Recovering/Resolving]
  - Abscess [Recovering/Resolving]
  - Impaired healing [Recovering/Resolving]

NARRATIVE: CASE EVENT DATE: 20201028
